FAERS Safety Report 7014694-8 (Version None)
Quarter: 2010Q3

REPORT INFORMATION
  Report Type: 
  Country: None (occurrence: None)
  Receive Date: 20100927
  Receipt Date: 20100419
  Transmission Date: 20110219
  Serious: Yes (Hospitalization, Other)
  Sender: FDA-Public Use
  Company Number: PHEH2010US03843

PATIENT
  Sex: Female

DRUGS (3)
  1. AREDIA [Suspect]
     Dosage: UNK
     Dates: start: 20000307, end: 20020101
  2. AROMASIN [Concomitant]
  3. TAMOXIFEN CITRATE [Concomitant]

REACTIONS (3)
  - ABSCESS LIMB [None]
  - DIABETES MELLITUS [None]
  - SCIATICA [None]
